FAERS Safety Report 20663785 (Version 1)
Quarter: 2022Q2

REPORT INFORMATION
  Report Type: Spontaneous
  Country: NL (occurrence: NL)
  Receive Date: 20220401
  Receipt Date: 20220401
  Transmission Date: 20220721
  Serious: Yes (Other)
  Sender: FDA-Public Use
  Company Number: None

PATIENT
  Sex: Female
  Weight: 58 kg

DRUGS (3)
  1. FLUTICASONE PROPIONATE [Suspect]
     Active Substance: FLUTICASONE PROPIONATE
     Indication: Seasonal allergy
     Dosage: 1 OR 2 SPRAYS PER DAY IN EACH NOSTRIL, FLUTICASON-PROPIONAAT NEUSSPRAY 50UG/DO / BRAND NAME NOT SPEC
     Route: 045
     Dates: start: 202106, end: 20210731
  2. FLUTICASONE PROPIONATE [Suspect]
     Active Substance: FLUTICASONE PROPIONATE
     Indication: Hypersensitivity
  3. DESLORATADINE [Concomitant]
     Active Substance: DESLORATADINE
     Dosage: STRENGTH:  5 MG (MILLIGRAM), BRAND NAME NOT SPECIFIED, THERAPY START DATE AND END DATE : ASKU

REACTIONS (2)
  - Suicidal ideation [Recovered/Resolved]
  - Depressed mood [Recovered/Resolved]
